FAERS Safety Report 12376010 (Version 2)
Quarter: 2016Q3

REPORT INFORMATION
  Report Type: Spontaneous
  Country: US (occurrence: US)
  Receive Date: 20160517
  Receipt Date: 20160701
  Transmission Date: 20161109
  Serious: Yes (Disabling, Other)
  Sender: FDA-Public Use
  Company Number: US-009507513-1110USA03898

PATIENT
  Sex: Male
  Weight: 68.27 kg

DRUGS (1)
  1. PROPECIA [Suspect]
     Active Substance: FINASTERIDE
     Indication: ANDROGENETIC ALOPECIA
     Dosage: 1 MG, UNKNOWN
     Route: 065
     Dates: start: 20081101, end: 20090101

REACTIONS (19)
  - Pelvic floor muscle weakness [Unknown]
  - Epididymal cyst [Unknown]
  - Cognitive disorder [Not Recovered/Not Resolved]
  - Semen volume decreased [Not Recovered/Not Resolved]
  - Urinary retention [Unknown]
  - Hypoaesthesia [Unknown]
  - Sexual dysfunction [Not Recovered/Not Resolved]
  - Pollakiuria [Unknown]
  - Penile pain [Unknown]
  - Depression [Not Recovered/Not Resolved]
  - Insomnia [Unknown]
  - Libido decreased [Not Recovered/Not Resolved]
  - Mitral valve prolapse [Unknown]
  - Disturbance in attention [Unknown]
  - Testicular pain [Not Recovered/Not Resolved]
  - Urinary tract infection [Unknown]
  - Anxiety [Not Recovered/Not Resolved]
  - Organic erectile dysfunction [Recovering/Resolving]
  - Gastrooesophageal reflux disease [Unknown]

NARRATIVE: CASE EVENT DATE: 200901
